FAERS Safety Report 25657097 (Version 2)
Quarter: 2025Q3

REPORT INFORMATION
  Report Type: Spontaneous
  Country: US (occurrence: US)
  Receive Date: 20250808
  Receipt Date: 20250808
  Transmission Date: 20251021
  Serious: No
  Sender: BRISTOL-MYERS SQUIBB COMPANY
  Company Number: US-BRISTOL-MYERS SQUIBB COMPANY-2025-110282

PATIENT
  Sex: Male

DRUGS (4)
  1. AUGTYRO [Suspect]
     Active Substance: REPOTRECTINIB
     Indication: Product used for unknown indication
  2. AUGTYRO [Suspect]
     Active Substance: REPOTRECTINIB
  3. AUGTYRO [Suspect]
     Active Substance: REPOTRECTINIB
  4. AUGTYRO [Suspect]
     Active Substance: REPOTRECTINIB

REACTIONS (2)
  - Muscle spasms [Unknown]
  - Myalgia [Unknown]
